FAERS Safety Report 7211842-1 (Version None)
Quarter: 2011Q1

REPORT INFORMATION
  Report Type: 
  Country: None (occurrence: None)
  Receive Date: 20110106
  Receipt Date: 20100416
  Transmission Date: 20110831
  Serious: Yes (Life-Threatening, Hospitalization, Other)
  Sender: FDA-Public Use
  Company Number: US-RANBAXY-2010US-36092

PATIENT

DRUGS (33)
  1. GANCICLOVIR [Suspect]
     Dosage: 1000 MG, TID
     Route: 048
     Dates: start: 20080524, end: 20080602
  2. AMLODIPINE [Concomitant]
     Indication: HYPERTENSION
     Route: 065
  3. FERROUS SULFATE [Concomitant]
     Indication: ANAEMIA
     Route: 065
  4. ANCEF [Concomitant]
     Indication: ANTIBIOTIC PROPHYLAXIS
     Route: 065
  5. FILGRASTIM [Concomitant]
     Indication: NEUTROPENIA
  6. HYDROMORPHONE HCL [Concomitant]
     Indication: ABDOMINAL PAIN
     Route: 065
  7. MEROPENEM [Concomitant]
     Indication: ANTIBIOTIC PROPHYLAXIS
     Route: 065
  8. OXYCODONE HCL [Concomitant]
     Indication: PROCEDURAL PAIN
     Route: 065
  9. CLOTRIMAZOLE [Concomitant]
     Indication: SEBORRHOEIC DERMATITIS
     Dosage: 1% CREAM
     Route: 065
  10. DOCUSATE [Concomitant]
     Indication: POST PROCEDURAL CONSTIPATION
     Route: 065
  11. LEVOTHYROXINE [Concomitant]
     Indication: HYPOTHYROIDISM
     Route: 065
  12. MARIBAVIR (PLACEBO) [Suspect]
     Indication: ANTIVIRAL PROPHYLAXIS
     Dosage: 100 MG 2 IN 1 D
     Route: 048
     Dates: start: 20080513, end: 20080518
  13. GANCICLOVIR [Concomitant]
     Indication: CYTOMEGALOVIRUS INFECTION
     Route: 065
  14. CALCIUM GLUCONATE [Concomitant]
     Indication: HYPOCALCAEMIA
     Route: 065
  15. METRONIDAZOLE [Concomitant]
     Indication: ANTIBIOTIC PROPHYLAXIS
     Route: 065
  16. MYCOPHENOLIC ACID [Concomitant]
     Indication: PROPHYLAXIS AGAINST TRANSPLANT REJECTION
     Route: 065
  17. TACROLIMUS [Concomitant]
     Indication: PROPHYLAXIS AGAINST TRANSPLANT REJECTION
     Route: 065
  18. RANITIDINE [Concomitant]
     Indication: GASTROOESOPHAGEAL REFLUX PROPHYLAXIS
     Route: 065
  19. GANCICLOVIR [Suspect]
     Dosage: 1000 MG 3 IN 1 D
     Route: 048
     Dates: start: 20080603, end: 20080818
  20. ACYCLOVIR SODIUM [Suspect]
     Indication: ANTIVIRAL PROPHYLAXIS
     Dosage: 400 MG 2 IN 1 D
     Route: 048
     Dates: start: 20080513, end: 20080818
  21. CALCIUM CARBONATE [Concomitant]
     Indication: HYPOCALCAEMIA
     Route: 065
  22. GANCICLOVIR [Suspect]
     Indication: ANTIVIRAL PROPHYLAXIS
     Dosage: 500 MG 2 IN 1D
     Route: 048
     Dates: start: 20080513, end: 20080523
  23. HEPARIN [Concomitant]
     Indication: THROMBOSIS
     Route: 065
  24. CHOLECALCIFEROL [Concomitant]
     Indication: VITAMIN SUPPLEMENTATION
     Route: 065
  25. CLOPIDOGREL [Concomitant]
     Indication: THROMBOSIS PROPHYLAXIS
     Route: 065
  26. ACETAMINOPHEN [Concomitant]
     Indication: ABDOMINAL PAIN
     Route: 065
  27. BACTRIM/ SULFAMETHOXALE [Concomitant]
     Indication: ANTIBIOTIC PROPHYLAXIS
     Route: 065
  28. FENTANYL-100 [Concomitant]
     Indication: PROCEDURAL PAIN
     Route: 065
  29. FILGRASTIM [Concomitant]
     Indication: LEUKOPENIA
     Route: 065
  30. MAGNESIUM SULFATE [Concomitant]
     Indication: HYPOMAGNESAEMIA
     Route: 065
  31. OMEPRAZOLE [Concomitant]
     Indication: PROPHYLAXIS AGAINST GASTROINTESTINAL ULCER
     Route: 065
  32. VANCOMYCIN [Concomitant]
     Indication: ANTIBIOTIC PROPHYLAXIS
     Route: 065
  33. FLUCONAZOLE [Concomitant]
     Indication: ANTIBIOTIC PROPHYLAXIS
     Route: 065

REACTIONS (9)
  - INGUINAL HERNIA [None]
  - INTESTINAL ISCHAEMIA [None]
  - WOUND INFECTION [None]
  - PERITONITIS BACTERIAL [None]
  - DRUG INEFFECTIVE [None]
  - CLOSTRIDIUM DIFFICILE COLITIS [None]
  - CYTOMEGALOVIRUS COLITIS [None]
  - URINARY TRACT INFECTION [None]
  - CYTOMEGALOVIRUS GASTROENTERITIS [None]
